FAERS Safety Report 8041484-X (Version None)
Quarter: 2012Q1

REPORT INFORMATION
  Report Type: 
  Country: None (occurrence: None)
  Receive Date: 20120112
  Receipt Date: 20120112
  Transmission Date: 20120608
  Serious: Yes (Death, Other)
  Sender: FDA-Public Use
  Company Number: MX-PFIZER INC-2012006214

PATIENT
  Age: 79 Year
  Sex: Female

DRUGS (3)
  1. LIPITOR [Suspect]
     Dosage: 20 MG, UNK
     Route: 048
  2. CADUET [Suspect]
     Dosage: [AMLODIPINE BESILATE 5]/[ATORVASTATIN CALCIUM 10 MG], UNK
     Route: 048
  3. NORVASC [Suspect]
     Dosage: 5 MG, UNK
     Route: 048

REACTIONS (1)
  - DEATH [None]
